FAERS Safety Report 25083049 (Version 3)
Quarter: 2025Q2

REPORT INFORMATION
  Report Type: Spontaneous
  Country: IT (occurrence: IT)
  Receive Date: 20250317
  Receipt Date: 20250401
  Transmission Date: 20250716
  Serious: Yes (Death, Other)
  Sender: DAIICHI
  Company Number: IT-DSJP-DS-2025-130445-IT

PATIENT
  Age: 58 Year
  Sex: Male

DRUGS (2)
  1. TRASTUZUMAB DERUXTECAN [Suspect]
     Active Substance: TRASTUZUMAB DERUXTECAN
     Indication: Metastatic gastric cancer
     Route: 065
  2. TRASTUZUMAB DERUXTECAN [Suspect]
     Active Substance: TRASTUZUMAB DERUXTECAN
     Route: 065
     Dates: start: 20250103, end: 20250103

REACTIONS (5)
  - Intestinal perforation [Fatal]
  - Hyperkinesia [Fatal]
  - Hypovolaemic shock [Fatal]
  - Volvulus [Fatal]
  - Device occlusion [Unknown]

NARRATIVE: CASE EVENT DATE: 20250103
